FAERS Safety Report 17830430 (Version 1)
Quarter: 2020Q2

REPORT INFORMATION
  Report Type: Spontaneous
  Country: US (occurrence: US)
  Receive Date: 20200527
  Receipt Date: 20200527
  Transmission Date: 20200714
  Serious: No
  Sender: FDA-Public Use
  Company Number: US-009507513-2005USA006456

PATIENT
  Sex: Female
  Weight: 57.15 kg

DRUGS (1)
  1. NUVARING [Suspect]
     Active Substance: ETHINYL ESTRADIOL\ETONOGESTREL
     Indication: MENOPAUSE
     Route: 067

REACTIONS (3)
  - Accidental underdose [Unknown]
  - Device use issue [Unknown]
  - Device expulsion [Unknown]
